FAERS Safety Report 13594542 (Version 7)
Quarter: 2018Q4

REPORT INFORMATION
  Report Type: Spontaneous
  Country: US (occurrence: US)
  Receive Date: 20170530
  Receipt Date: 20181127
  Transmission Date: 20190204
  Serious: Yes (Other)
  Sender: FDA-Public Use
  Company Number: US-PFIZER INC-2017232412

PATIENT
  Age: 35 Year
  Sex: Male
  Weight: 109 kg

DRUGS (1)
  1. BENEFIX [Suspect]
     Active Substance: COAGULATION FACTOR IX RECOMBINANT HUMAN\ISOPROPYL ALCOHOL
     Indication: HAEMORRHAGE
     Dosage: 11000 IU (+/- 1050), AS NEEDED
     Route: 042

REACTIONS (4)
  - Gait disturbance [Unknown]
  - Haemarthrosis [Recovering/Resolving]
  - Pain [Unknown]
  - Epistaxis [Unknown]

NARRATIVE: CASE EVENT DATE: 201705
